FAERS Safety Report 5600181-8 (Version None)
Quarter: 2008Q1

REPORT INFORMATION
  Report Type: 
  Country: None (occurrence: None)
  Receive Date: 20080117
  Receipt Date: 20080117
  Transmission Date: 20080703
  Serious: Yes (Life-Threatening, Hospitalization)
  Sender: FDA-Public Use
  Company Number: None

PATIENT
  Sex: Female
  Weight: 90.7 kg

DRUGS (2)
  1. FLUOXETINE MANUFACTURER UNKNOWN [Suspect]
     Indication: DEPRESSION
     Dosage: 20MG DAILY PO
     Route: 048
  2. METHADONE MANUFACTURER UNKNOWN [Suspect]
     Indication: DRUG DEPENDENCE
     Dosage: 150MG DAILY PO
     Route: 048

REACTIONS (3)
  - SYNCOPE [None]
  - TORSADE DE POINTES [None]
  - VENTRICULAR EXTRASYSTOLES [None]
